FAERS Safety Report 9447717 (Version 2)
Quarter: 2013Q3

REPORT INFORMATION
  Report Type: Spontaneous
  Country: FR (occurrence: FR)
  Receive Date: 20130808
  Receipt Date: 20130902
  Transmission Date: 20140515
  Serious: Yes (Other)
  Sender: FDA-Public Use
  Company Number: FR-JNJFOC-20130717453

PATIENT
  Age: 76 Year
  Sex: Male

DRUGS (2)
  1. DUROGESIC [Suspect]
     Indication: PANCREATIC CARCINOMA
     Route: 062
  2. DUROGESIC [Suspect]
     Indication: PANCREATIC CARCINOMA
     Route: 062

REACTIONS (6)
  - Miosis [Recovered/Resolved]
  - Overdose [Unknown]
  - Somnolence [Recovered/Resolved]
  - Inappropriate schedule of drug administration [Unknown]
  - Drug prescribing error [Unknown]
  - Oxygen saturation decreased [Unknown]
